FAERS Safety Report 7981943-9 (Version None)
Quarter: 2011Q4

REPORT INFORMATION
  Report Type: 
  Country: None (occurrence: None)
  Receive Date: 20111213
  Receipt Date: 20111201
  Transmission Date: 20120403
  Serious: Yes (Other)
  Sender: FDA-Public Use
  Company Number: ABR_00307_2011

PATIENT
  Sex: Female

DRUGS (1)
  1. ERYTHROMYCIN [Suspect]
     Indication: STREPTOCOCCUS TEST POSITIVE
     Dates: start: 19910101

REACTIONS (3)
  - THROAT TIGHTNESS [None]
  - ANAPHYLACTIC REACTION [None]
  - RESPIRATORY ARREST [None]
